FAERS Safety Report 10578349 (Version 2)
Quarter: 2014Q4

REPORT INFORMATION
  Report Type: Spontaneous
  Country: JP (occurrence: JP)
  Receive Date: 20141112
  Receipt Date: 20141112
  Transmission Date: 20150529
  Serious: Yes (Hospitalization, Other)
  Sender: FDA-Public Use
  Company Number: PHHY2003JP005339

PATIENT
  Age: 73 Year
  Sex: Female

DRUGS (1)
  1. GLIVEC [Suspect]
     Active Substance: IMATINIB MESYLATE
     Indication: CHRONIC MYELOID LEUKAEMIA
     Dosage: UNK
     Route: 065
     Dates: start: 2003

REACTIONS (22)
  - Skin depigmentation [Recovered/Resolved]
  - Decreased appetite [Unknown]
  - Pallor [Unknown]
  - Feeling abnormal [Unknown]
  - Oedema peripheral [Recovered/Resolved]
  - Conjunctival haemorrhage [Unknown]
  - Dry eye [Unknown]
  - Productive cough [Recovering/Resolving]
  - Vomiting [Unknown]
  - Anaemia [Recovered/Resolved]
  - Haemorrhage [Unknown]
  - Gastric ulcer haemorrhage [Unknown]
  - Depression [Unknown]
  - Mental disorder [Unknown]
  - Anxiety [Unknown]
  - Cough [Recovering/Resolving]
  - Choking [Unknown]
  - Ocular hyperaemia [Unknown]
  - Nausea [Unknown]
  - Femoral neck fracture [Recovered/Resolved]
  - Hair colour changes [Recovered/Resolved]
  - Chronic gastritis [Unknown]
